FAERS Safety Report 19922061 (Version 1)
Quarter: 2021Q4

REPORT INFORMATION
  Report Type: Spontaneous
  Country: JP (occurrence: JP)
  Receive Date: 20211006
  Receipt Date: 20211006
  Transmission Date: 20220303
  Serious: Yes (Hospitalization, Other)
  Sender: FDA-Public Use
  Company Number: JP-NOVARTISPH-NVSJ2021JP016300

PATIENT
  Age: 63 Year
  Sex: Male

DRUGS (3)
  1. TEGRETOL [Interacting]
     Active Substance: CARBAMAZEPINE
     Indication: Schizophrenia
     Dosage: UNK
     Route: 048
  2. PREDNISOLONE [Interacting]
     Active Substance: PREDNISOLONE
     Indication: Nephrotic syndrome
     Dosage: 1 MG/KG
     Route: 065
  3. PREDNISOLONE [Interacting]
     Active Substance: PREDNISOLONE
     Dosage: THE TAPERED PSL
     Route: 065

REACTIONS (3)
  - Nephrotic syndrome [Recovered/Resolved]
  - Oliguria [Recovered/Resolved]
  - Drug interaction [Unknown]
